FAERS Safety Report 24318091 (Version 1)
Quarter: 2024Q3

REPORT INFORMATION
  Report Type: Spontaneous
  Country: US (occurrence: US)
  Receive Date: 20240913
  Receipt Date: 20240913
  Transmission Date: 20241017
  Serious: No
  Sender: BIOVITRUM
  Company Number: US-BIOVITRUM-2024-US-011952

PATIENT
  Age: 80 Year
  Sex: Female

DRUGS (1)
  1. VONJO [Suspect]
     Active Substance: PACRITINIB
     Indication: Myelofibrosis
     Dosage: 100 MG TWICE DAILY
     Route: 048
     Dates: start: 20231207

REACTIONS (2)
  - Insomnia [Recovering/Resolving]
  - Intentional product misuse [Not Recovered/Not Resolved]

NARRATIVE: CASE EVENT DATE: 20231207
